FAERS Safety Report 19960560 (Version 2)
Quarter: 2021Q4

REPORT INFORMATION
  Report Type: Spontaneous
  Country: US (occurrence: US)
  Receive Date: 20211015
  Receipt Date: 20211021
  Transmission Date: 20220303
  Serious: No
  Sender: FDA-Public Use
  Company Number: US-TAKEDA-2021TUS061933

PATIENT
  Sex: Female
  Weight: 74 kg

DRUGS (4)
  1. GAMMAGARD [Suspect]
     Active Substance: HUMAN IMMUNOGLOBULIN G
     Indication: Haemophilus infection
     Dosage: 1 UNK, Q3WEEKS
     Route: 065
     Dates: start: 2021
  2. MACITENTAN [Suspect]
     Active Substance: MACITENTAN
     Indication: Pulmonary arterial hypertension
     Dosage: 10 MILLIGRAM
     Route: 048
     Dates: start: 20210522
  3. SELEXIPAG [Suspect]
     Active Substance: SELEXIPAG
     Indication: Pulmonary arterial hypertension
     Dosage: 200 MICROGRAM
     Route: 048
  4. SILDENAFIL CITRATE [Concomitant]
     Active Substance: SILDENAFIL CITRATE

REACTIONS (12)
  - Weight decreased [Unknown]
  - Decreased appetite [Unknown]
  - Emotional distress [Unknown]
  - Back pain [Unknown]
  - Pain in extremity [Unknown]
  - Blood pressure increased [Recovered/Resolved]
  - Headache [Unknown]
  - Lethargy [Recovered/Resolved]
  - Myalgia [Recovered/Resolved]
  - Crying [Recovered/Resolved]
  - Loss of personal independence in daily activities [Recovered/Resolved]
  - Product use in unapproved indication [Unknown]

NARRATIVE: CASE EVENT DATE: 20210101
